FAERS Safety Report 4480772-0 (Version None)
Quarter: 2004Q4

REPORT INFORMATION
  Report Type: 
  Country: None (occurrence: None)
  Receive Date: 20041019
  Receipt Date: 20041001
  Transmission Date: 20050328
  Serious: Yes (Death)
  Sender: FDA-Public Use
  Company Number: PIR 0409051

PATIENT
  Age: 1 Day
  Sex: Male
  Weight: 1.98 kg

DRUGS (1)
  1. DEXTROSE 70% [Suspect]
     Indication: PREMATURE BABY
     Dosage: 250 ML DAILY IV
     Route: 042
     Dates: start: 20040731

REACTIONS (1)
  - RESUSCITATION [None]
